FAERS Safety Report 4778539-9 (Version None)
Quarter: 2005Q3

REPORT INFORMATION
  Report Type: 
  Country: None (occurrence: None)
  Receive Date: 20050926
  Receipt Date: 20050828
  Transmission Date: 20060218
  Serious: No
  Sender: FDA-Public Use
  Company Number: US-BRISTOL-MYERS SQUIBB COMPANY-13092820

PATIENT
  Age: 55 Year

DRUGS (6)
  1. REYATAZ [Suspect]
     Indication: HIV INFECTION
  2. RITONAVIR [Interacting]
     Indication: HIV INFECTION
  3. PEGASYS [Interacting]
     Indication: HEPATITIS C
  4. RIBAVIRIN [Interacting]
     Indication: HEPATITIS C
  5. AZT [Concomitant]
     Indication: HIV INFECTION
  6. TRUVADA [Concomitant]
     Indication: HIV INFECTION

REACTIONS (2)
  - BLOOD BILIRUBIN INCREASED [None]
  - DRUG INTERACTION [None]
